FAERS Safety Report 15933575 (Version 1)
Quarter: 2019Q1

REPORT INFORMATION
  Report Type: Spontaneous
  Country: GB (occurrence: GB)
  Receive Date: 20190207
  Receipt Date: 20190207
  Transmission Date: 20190417
  Serious: Yes (Hospitalization, Disabling, Other)
  Sender: FDA-Public Use
  Company Number: GB-MYLANLABS-2019M1010819

PATIENT
  Age: 19 Year
  Sex: Female

DRUGS (1)
  1. QUININE [Suspect]
     Active Substance: QUININE
     Indication: PRODUCT USED FOR UNKNOWN INDICATION
     Dosage: 39.5 GRAM, TOTAL (39.5 G, 1X)

REACTIONS (8)
  - Vomiting [Unknown]
  - Coma [Unknown]
  - Intentional overdose [Unknown]
  - Intentional product misuse [Unknown]
  - Retinal oedema [Unknown]
  - Drug abuse [Unknown]
  - Exposure during pregnancy [Unknown]
  - Amaurosis [Recovering/Resolving]
